FAERS Safety Report 15509605 (Version 1)
Quarter: 2018Q4

REPORT INFORMATION
  Report Type: Report from Study
  Country: IT (occurrence: IT)
  Receive Date: 20181016
  Receipt Date: 20181016
  Transmission Date: 20190205
  Serious: Yes (Death)
  Sender: FDA-Public Use
  Company Number: IT-PFIZER INC-2018387961

PATIENT
  Age: 21 Year
  Sex: Male
  Weight: 63 kg

DRUGS (5)
  1. BESPONSA [Suspect]
     Active Substance: INOTUZUMAB OZOGAMICIN
     Indication: ACUTE LYMPHOCYTIC LEUKAEMIA
     Dosage: 0.8 MG/M2, DAY1
     Route: 042
     Dates: start: 20170829, end: 20170912
  2. SIROLIMUS. [Suspect]
     Active Substance: SIROLIMUS
     Indication: IMMUNOSUPPRESSANT DRUG THERAPY
     Dosage: TABLET;TARGET WHOLE BLOOD TROUGH CONCENTRATIONS 4.5-14 MG/ML.
     Route: 048
     Dates: start: 20171119, end: 20171130
  3. THIOTEPA. [Suspect]
     Active Substance: THIOTEPA
     Indication: IMMUNOSUPPRESSANT DRUG THERAPY
     Dosage: POWDER; 5 MG/KG, DAILY
     Route: 042
     Dates: start: 20171111, end: 20171112
  4. BESPONSA [Suspect]
     Active Substance: INOTUZUMAB OZOGAMICIN
     Dosage: 0.5 MG/M2, DAY 8, AND 15
     Route: 042
     Dates: start: 20170829, end: 20170912
  5. BESPONSA [Suspect]
     Active Substance: INOTUZUMAB OZOGAMICIN
     Dosage: 0.5 MG/M2, DAY1-8-15
     Route: 042
     Dates: start: 20170927, end: 20171011

REACTIONS (1)
  - Venoocclusive liver disease [Fatal]

NARRATIVE: CASE EVENT DATE: 20171127
